FAERS Safety Report 6596471-5 (Version None)
Quarter: 2010Q1

REPORT INFORMATION
  Report Type: 
  Country: None (occurrence: None)
  Receive Date: 20100222
  Receipt Date: 20100222
  Transmission Date: 20100710
  Serious: Yes (Death, Hospitalization)
  Sender: FDA-Public Use
  Company Number: None

PATIENT
  Age: 83 Year
  Sex: Male
  Weight: 64.2 kg

DRUGS (1)
  1. IOPAMIDOL [Suspect]
     Indication: COMPUTERISED TOMOGRAM
     Dosage: 95 MG ONCE IV
     Route: 042
     Dates: start: 20091110, end: 20091110

REACTIONS (4)
  - CONTRAST MEDIA ALLERGY [None]
  - PRURITUS GENERALISED [None]
  - PURPURA [None]
  - RASH MACULO-PAPULAR [None]
